APPROVED DRUG PRODUCT: MICAFUNGIN SODIUM
Active Ingredient: MICAFUNGIN SODIUM
Strength: EQ 100MG BASE/VIAL
Dosage Form/Route: INJECTABLE;INTRAVENOUS
Application: A208366 | Product #002
Applicant: APOTEX INC
Approved: Nov 5, 2020 | RLD: No | RS: No | Type: DISCN